FAERS Safety Report 8539064-2 (Version None)
Quarter: 2012Q3

REPORT INFORMATION
  Report Type: 
  Country: None (occurrence: None)
  Receive Date: 20120726
  Receipt Date: 20120724
  Transmission Date: 20120928
  Serious: Yes (Death)
  Sender: FDA-Public Use
  Company Number: PHEH2012US013231

PATIENT
  Sex: Male

DRUGS (3)
  1. PROCHLORPERAZINE [Concomitant]
  2. GLEEVEC [Suspect]
     Indication: MALIGNANT SOFT TISSUE NEOPLASM
     Dosage: 400 MG, DAILY
     Route: 048
     Dates: start: 20120214
  3. PEPCID [Concomitant]

REACTIONS (1)
  - PLEURAL EFFUSION [None]
